FAERS Safety Report 15824738 (Version 1)
Quarter: 2019Q1

REPORT INFORMATION
  Report Type: Spontaneous
  Country: GB (occurrence: GB)
  Receive Date: 20190115
  Receipt Date: 20190115
  Transmission Date: 20190417
  Serious: Yes (Other)
  Sender: FDA-Public Use
  Company Number: GB-CONCORDIA PHARMACEUTICALS INC.-E2B_00018231

PATIENT
  Age: 65 Year
  Sex: Female
  Weight: 60.77 kg

DRUGS (5)
  1. PREDNISOLONE. [Suspect]
     Active Substance: PREDNISOLONE
     Indication: ALLERGY TO ARTHROPOD BITE
     Route: 048
     Dates: start: 20181218
  2. LORATADINE. [Concomitant]
     Active Substance: LORATADINE
  3. RANITIDINE. [Concomitant]
     Active Substance: RANITIDINE
  4. ADCAL [Concomitant]
     Active Substance: CALCIUM CARBONATE
  5. COCODAMOL [Concomitant]
     Active Substance: ACETAMINOPHEN\CODEINE PHOSPHATE

REACTIONS (1)
  - Dyspepsia [Not Recovered/Not Resolved]

NARRATIVE: CASE EVENT DATE: 20181227
